FAERS Safety Report 8528749-X (Version None)
Quarter: 2012Q3

REPORT INFORMATION
  Report Type: 
  Country: None (occurrence: None)
  Receive Date: 20120723
  Receipt Date: 20120629
  Transmission Date: 20120928
  Serious: No
  Sender: FDA-Public Use
  Company Number: US-009507513-1206USA05598

PATIENT

DRUGS (1)
  1. COSOPT [Suspect]
     Dosage: 10 ML DISPENSER
     Route: 047

REACTIONS (5)
  - PRODUCT GEL FORMATION [None]
  - EYELIDS PRURITUS [None]
  - BURNING SENSATION [None]
  - EYELID IRRITATION [None]
  - MEDICATION RESIDUE [None]
